FAERS Safety Report 13040826 (Version 1)
Quarter: 2016Q4

REPORT INFORMATION
  Report Type: Spontaneous
  Country: US (occurrence: US)
  Receive Date: 20161219
  Receipt Date: 20161219
  Transmission Date: 20170207
  Serious: Yes (Other)
  Sender: FDA-Public Use
  Company Number: US-PFIZER INC-2016573311

PATIENT
  Age: 83 Year
  Sex: Female

DRUGS (14)
  1. CALCIUM 500+D [Concomitant]
     Active Substance: CALCIUM\VITAMIN D
     Dosage: UNK
  2. NITROGLYCERINE [Concomitant]
     Active Substance: NITROGLYCERIN
     Dosage: UNK
  3. PLAVIX [Concomitant]
     Active Substance: CLOPIDOGREL BISULFATE
     Dosage: UNK
  4. VITAMIN D [Concomitant]
     Active Substance: CHOLECALCIFEROL
     Dosage: UNK
  5. ANASTROZOLE. [Concomitant]
     Active Substance: ANASTROZOLE
     Dosage: UNK
  6. ASPIRIN. [Concomitant]
     Active Substance: ASPIRIN
     Dosage: UNK
  7. COZAAR [Concomitant]
     Active Substance: LOSARTAN POTASSIUM
     Dosage: UNK
  8. PROCHLORPERAZINE MALEATE. [Concomitant]
     Active Substance: PROCHLORPERAZINE MALEATE
     Dosage: UNK
  9. ULTRAM ER [Concomitant]
     Active Substance: TRAMADOL HYDROCHLORIDE
     Dosage: UNK
  10. IBRANCE [Suspect]
     Active Substance: PALBOCICLIB
     Indication: BREAST CANCER FEMALE
     Dosage: 125 MG, DAILY
     Dates: start: 20161029
  11. COREG [Concomitant]
     Active Substance: CARVEDILOL
     Dosage: UNK
  12. NYSTATIN. [Concomitant]
     Active Substance: NYSTATIN
     Dosage: UNK
  13. LIPITOR [Concomitant]
     Active Substance: ATORVASTATIN CALCIUM
     Dosage: UNK
  14. LYRICA [Concomitant]
     Active Substance: PREGABALIN
     Dosage: UNK

REACTIONS (2)
  - Neutropenia [Unknown]
  - Off label use [Unknown]
